FAERS Safety Report 15359035 (Version 1)
Quarter: 2018Q3

REPORT INFORMATION
  Report Type: Spontaneous
  Country: US (occurrence: US)
  Receive Date: 20180906
  Receipt Date: 20180906
  Transmission Date: 20181010
  Serious: Yes (Other)
  Sender: FDA-Public Use
  Company Number: US-BRISTOL-MYERS SQUIBB COMPANY-BMS-2018-081230

PATIENT
  Sex: Female

DRUGS (1)
  1. KENALOG?10 [Suspect]
     Active Substance: TRIAMCINOLONE ACETONIDE
     Indication: URTICARIA
     Dosage: UNAVAILABLE
     Route: 065
     Dates: start: 201804, end: 201804

REACTIONS (3)
  - Injection site indentation [Unknown]
  - Extremity necrosis [Unknown]
  - Drug ineffective [Unknown]
